FAERS Safety Report 5563280-5 (Version None)
Quarter: 2007Q4

REPORT INFORMATION
  Report Type: 
  Country: None (occurrence: None)
  Receive Date: 20071212
  Receipt Date: 20071130
  Transmission Date: 20080405
  Serious: Yes (Other)
  Sender: FDA-Public Use
  Company Number: 2007S1012568

PATIENT
  Age: 60 Year
  Sex: Female

DRUGS (1)
  1. FENTANYL TRANSDERMAL SYSTEM [Suspect]
     Dosage: 25 UG/HR;X1;TRANSDERMAL
     Route: 062
     Dates: start: 20071129, end: 20071129

REACTIONS (5)
  - ABASIA [None]
  - ACCIDENTAL EXPOSURE [None]
  - DIZZINESS [None]
  - HEART RATE DECREASED [None]
  - MOVEMENT DISORDER [None]
